FAERS Safety Report 7814661-8 (Version None)
Quarter: 2011Q4

REPORT INFORMATION
  Report Type: 
  Country: None (occurrence: None)
  Receive Date: 20111014
  Receipt Date: 20111007
  Transmission Date: 20120403
  Serious: Yes (Other)
  Sender: FDA-Public Use
  Company Number: US-BAYER-2011-096587

PATIENT
  Sex: Female

DRUGS (2)
  1. YAZ [Suspect]
     Dosage: UNK
     Route: 048
     Dates: start: 20060104
  2. YASMIN [Suspect]
     Dosage: UNK
     Route: 048
     Dates: start: 20060104

REACTIONS (1)
  - CEREBROVASCULAR ACCIDENT [None]
